FAERS Safety Report 18214684 (Version 1)
Quarter: 2020Q3

REPORT INFORMATION
  Report Type: Report from Study
  Country: CA (occurrence: CA)
  Receive Date: 20200831
  Receipt Date: 20200831
  Transmission Date: 20201103
  Serious: Yes (Other)
  Sender: FDA-Public Use
  Company Number: CA-JNJFOC-20200834750

PATIENT
  Age: 15 Year
  Sex: Female
  Weight: 36.3 kg

DRUGS (2)
  1. REMICADE [Suspect]
     Active Substance: INFLIXIMAB
     Indication: CROHN^S DISEASE
     Route: 042
     Dates: start: 20200419
  2. REMICADE [Suspect]
     Active Substance: INFLIXIMAB
     Indication: COLITIS ULCERATIVE
     Dosage: 10 MG/KG?ON 20?AUG?2020, THE PATIENT RECEIVED 6TH INFUSION AT 363 MG AND PARTIAL MAYO COMPLETED.
     Route: 042
     Dates: start: 20200504

REACTIONS (5)
  - General physical health deterioration [Recovering/Resolving]
  - Off label use [Unknown]
  - Frequent bowel movements [Recovering/Resolving]
  - Product use issue [Unknown]
  - Haematochezia [Recovering/Resolving]

NARRATIVE: CASE EVENT DATE: 20200504
